FAERS Safety Report 22319678 (Version 3)
Quarter: 2023Q2

REPORT INFORMATION
  Report Type: Spontaneous
  Country: GB (occurrence: GB)
  Receive Date: 20230515
  Receipt Date: 20230628
  Transmission Date: 20230721
  Serious: No
  Sender: FDA-Public Use
  Company Number: GB-PFIZER INC-202300179819

PATIENT
  Age: 43 Year
  Sex: Female

DRUGS (1)
  1. GENOTROPIN [Suspect]
     Active Substance: SOMATROPIN
     Indication: In vitro fertilisation
     Dosage: 0.8 MG AT NIGHT FOR 10 DAYS
     Dates: start: 202304

REACTIONS (2)
  - Off label use [Unknown]
  - Device malfunction [Recovered/Resolved]

NARRATIVE: CASE EVENT DATE: 20230501
